FAERS Safety Report 9714346 (Version 2)
Quarter: 2014Q1

REPORT INFORMATION
  Report Type: Spontaneous
  Country: US (occurrence: US)
  Receive Date: 20131126
  Receipt Date: 20140109
  Transmission Date: 20141002
  Serious: Yes (Other)
  Sender: FDA-Public Use
  Company Number: US-PFIZER INC-2013335704

PATIENT
  Age: 57 Year
  Sex: Female
  Weight: 70 kg

DRUGS (10)
  1. LIPITOR [Suspect]
     Indication: LOW DENSITY LIPOPROTEIN INCREASED
     Dosage: UNK
     Route: 048
     Dates: start: 200702, end: 201307
  2. LIPITOR [Suspect]
     Indication: CARDIOVASCULAR EVENT PROPHYLAXIS
     Dosage: 20 MG, DAILY
     Route: 048
     Dates: start: 20070227
  3. LIPITOR [Suspect]
     Dosage: 40 MG, DAILY
     Route: 048
     Dates: start: 20100909
  4. LIPITOR [Suspect]
     Dosage: 10 MG, DAILY
     Route: 048
     Dates: start: 20120918
  5. HYDROCHLOROTHIAZIDE [Concomitant]
     Dosage: 25 MG, 1X/DAY
     Dates: start: 20100909
  6. SYNTHROID [Concomitant]
     Dosage: 75 UG, DAILY
     Dates: start: 20100909
  7. SYNTHROID [Concomitant]
     Dosage: 100 UG, DAILY
     Dates: start: 20120914
  8. ATELVIA [Concomitant]
     Dosage: UNK,
     Dates: start: 20120904
  9. ZETIA [Concomitant]
     Dosage: 10 MG, DAILY
     Dates: start: 20120904
  10. AMBIEN [Concomitant]
     Dosage: 10 MG, AS NEEDED (AT BED TIME)
     Dates: start: 20120904

REACTIONS (1)
  - Type 2 diabetes mellitus [Unknown]
